FAERS Safety Report 10175239 (Version 1)
Quarter: 2014Q2

REPORT INFORMATION
  Report Type: Spontaneous
  Country: US (occurrence: US)
  Receive Date: 20140515
  Receipt Date: 20140515
  Transmission Date: 20141212
  Serious: No
  Sender: FDA-Public Use
  Company Number: US-VIVUS-2014V1000117

PATIENT
  Age: 76 Year
  Sex: Female
  Weight: 78.54 kg

DRUGS (6)
  1. QSYMIA 3.75MG/23MG [Suspect]
     Indication: WEIGHT DECREASED
     Route: 048
     Dates: start: 20140303
  2. SYMBICORT [Concomitant]
     Indication: ASTHMA
     Dosage: 2 PUFFS
     Dates: start: 2011
  3. TUDORZA [Concomitant]
     Indication: ASTHMA
     Dosage: 2 PUFFS
     Dates: start: 2013
  4. ZYRTEC [Concomitant]
     Indication: ASTHMA
     Route: 048
     Dates: start: 2012
  5. XYAL [Concomitant]
     Indication: ASTHMA
     Route: 048
     Dates: start: 2013
  6. THEOPHYLLINE [Concomitant]
     Indication: ASTHMA
     Route: 048
     Dates: start: 2007

REACTIONS (1)
  - Urinary tract infection [Not Recovered/Not Resolved]
